FAERS Safety Report 7056317-8 (Version None)
Quarter: 2010Q4

REPORT INFORMATION
  Report Type: 
  Country: None (occurrence: None)
  Receive Date: 20101021
  Receipt Date: 20101018
  Transmission Date: 20110411
  Serious: Yes (Other)
  Sender: FDA-Public Use
  Company Number: DK-WYE-G05771310

PATIENT
  Sex: Female

DRUGS (1)
  1. EFFEXOR [Suspect]
     Indication: DEPRESSION
     Route: 048
     Dates: start: 20040901

REACTIONS (3)
  - DRUG EXPOSURE DURING PREGNANCY [None]
  - DRY MOUTH [None]
  - TOOTH INJURY [None]
